FAERS Safety Report 10558376 (Version 1)
Quarter: 2014Q4

REPORT INFORMATION
  Report Type: Spontaneous
  Country: FR (occurrence: FR)
  Receive Date: 20141031
  Receipt Date: 20141031
  Transmission Date: 20150529
  Serious: Yes (Death)
  Sender: FDA-Public Use
  Company Number: FR-ASTRAZENECA-2014SE81034

PATIENT
  Age: 3669 Week
  Sex: Male

DRUGS (7)
  1. BRILIQUE [Suspect]
     Active Substance: TICAGRELOR
     Route: 048
     Dates: start: 201405, end: 20141008
  2. DOLIPRANE [Concomitant]
     Active Substance: ACETAMINOPHEN
  3. TRIATEC [Concomitant]
     Active Substance: RAMIPRIL
  4. TAHOR [Concomitant]
     Active Substance: ATORVASTATIN CALCIUM
  5. KARDEGIC [Interacting]
     Active Substance: ASPIRIN LYSINE
     Route: 048
     Dates: start: 201405, end: 20141008
  6. NATISPRAY [Concomitant]
     Active Substance: NITROGLYCERIN
  7. KREDEX [Concomitant]
     Active Substance: CARVEDILOL

REACTIONS (2)
  - Drug interaction [Fatal]
  - Cerebral haemorrhage [Fatal]

NARRATIVE: CASE EVENT DATE: 20141008
